FAERS Safety Report 12060587 (Version 1)
Quarter: 2016Q1

REPORT INFORMATION
  Report Type: Spontaneous
  Country: US (occurrence: US)
  Receive Date: 20160210
  Receipt Date: 20160210
  Transmission Date: 20160526
  Serious: No
  Sender: FDA-Public Use
  Company Number: US-MALLINCKRODT-201502000042

PATIENT
  Sex: Female

DRUGS (1)
  1. INOMAX [Suspect]
     Active Substance: NITRIC OXIDE
     Dosage: 20 PPM, CONTINUOUS

REACTIONS (5)
  - Asthenia [Recovered/Resolved]
  - Dizziness [Recovered/Resolved]
  - Occupational exposure to product [Recovered/Resolved]
  - Headache [Recovered/Resolved]
  - Nausea [Recovered/Resolved]

NARRATIVE: CASE EVENT DATE: 20150202
